FAERS Safety Report 22251971 (Version 1)
Quarter: 2023Q2

REPORT INFORMATION
  Report Type: Spontaneous
  Country: US (occurrence: US)
  Receive Date: 20230425
  Receipt Date: 20230425
  Transmission Date: 20230722
  Serious: No
  Sender: FDA-Public Use
  Company Number: US-JNJFOC-20230453235

PATIENT
  Age: 64 Year
  Sex: Female

DRUGS (2)
  1. TREMFYA [Suspect]
     Active Substance: GUSELKUMAB
     Indication: Psoriatic arthropathy
     Route: 065
  2. TREMFYA [Suspect]
     Active Substance: GUSELKUMAB
     Indication: Psoriasis

REACTIONS (8)
  - Device occlusion [Unknown]
  - Product dose omission issue [Unknown]
  - Product quality issue [Unknown]
  - Product leakage [Unknown]
  - Needle issue [Unknown]
  - Device malfunction [Unknown]
  - Product label issue [Unknown]
  - Device defective [Unknown]
